FAERS Safety Report 6570733-X (Version None)
Quarter: 2010Q1

REPORT INFORMATION
  Report Type: 
  Country: None (occurrence: None)
  Receive Date: 20100204
  Receipt Date: 20100122
  Transmission Date: 20100710
  Serious: Yes (Hospitalization)
  Sender: FDA-Public Use
  Company Number: B0629359A

PATIENT
  Sex: Male

DRUGS (4)
  1. ARTIST [Suspect]
     Indication: CARDIAC FAILURE
     Dosage: 2.5MG PER DAY
     Route: 048
     Dates: start: 20090901, end: 20091206
  2. SELBEX [Concomitant]
     Route: 065
     Dates: start: 20090901, end: 20091206
  3. AMIODARONE HCL [Concomitant]
     Indication: VENTRICULAR ARRHYTHMIA
     Route: 065
     Dates: start: 20090901, end: 20091206
  4. TAKEPRON [Concomitant]
     Route: 065
     Dates: end: 20091206

REACTIONS (5)
  - CARDIAC FAILURE [None]
  - CHOLECYSTITIS [None]
  - HEPATIC FAILURE [None]
  - PANCREATITIS ACUTE [None]
  - RENAL FAILURE [None]
